FAERS Safety Report 6749695-8 (Version None)
Quarter: 2010Q2

REPORT INFORMATION
  Report Type: 
  Country: None (occurrence: None)
  Receive Date: 20100601
  Receipt Date: 20100526
  Transmission Date: 20101027
  Serious: Yes (Other)
  Sender: FDA-Public Use
  Company Number: AT-ABBOTT-10P-009-0647189-00

PATIENT
  Sex: Male

DRUGS (3)
  1. HUMIRA [Suspect]
     Indication: PSORIASIS
     Route: 058
     Dates: start: 20091101, end: 20100101
  2. HUMIRA [Suspect]
     Route: 058
     Dates: start: 20100302, end: 20100402
  3. MARCUMAR [Concomitant]
     Indication: ANTICOAGULANT THERAPY
     Dosage: AS NEEDED
     Route: 048

REACTIONS (1)
  - TRANSAMINASES INCREASED [None]
